FAERS Safety Report 5311137-7 (Version None)
Quarter: 2007Q2

REPORT INFORMATION
  Report Type: 
  Country: None (occurrence: None)
  Receive Date: 20070426
  Receipt Date: 20070426
  Transmission Date: 20071010
  Serious: Yes (Hospitalization)
  Sender: FDA-Public Use
  Company Number: None

PATIENT
  Sex: Male
  Weight: 153.3158 kg

DRUGS (2)
  1. CISPLATIN [Suspect]
     Indication: NEOPLASM MALIGNANT
     Dosage: 200MG/IV EVERY 3 WKS
     Route: 042
     Dates: start: 20070321
  2. DOCETAXEL [Suspect]
     Indication: NEOPLASM MALIGNANT
     Dosage: 200MG/IV EVERY 3 WKS
     Route: 042
     Dates: start: 20070321

REACTIONS (3)
  - ARTHRALGIA [None]
  - BLOOD CULTURE POSITIVE [None]
  - PYREXIA [None]
